FAERS Safety Report 9158708 (Version 1)
Quarter: 2013Q1

REPORT INFORMATION
  Report Type: Spontaneous
  Country: IT (occurrence: IT)
  Receive Date: 20130312
  Receipt Date: 20130312
  Transmission Date: 20140127
  Serious: Yes (Other)
  Sender: FDA-Public Use
  Company Number: IT-MYLANLABS-2013S1004755

PATIENT
  Age: 58 Year
  Sex: Female

DRUGS (4)
  1. AZITHROMYCIN [Suspect]
     Indication: PYREXIA
     Route: 048
     Dates: start: 20130116, end: 20130116
  2. AMOXICILLIN + CLAVULANIC ACID [Suspect]
     Indication: PYREXIA
     Route: 048
     Dates: start: 20130109, end: 20130115
  3. EUTIROX [Concomitant]
     Indication: HYPOTHYROIDISM
     Dosage: 100 UG TABLETS
  4. OLPRESS [Concomitant]
     Indication: HYPERTENSION
     Dosage: 10 MG TABLETS

REACTIONS (3)
  - Erythema [Recovering/Resolving]
  - Lip oedema [Recovering/Resolving]
  - Periorbital oedema [Recovering/Resolving]
